FAERS Safety Report 9696329 (Version 1)
Quarter: 2013Q4

REPORT INFORMATION
  Report Type: Report from Study
  Country: AR (occurrence: AR)
  Receive Date: 20131119
  Receipt Date: 20131119
  Transmission Date: 20140711
  Serious: Yes (Hospitalization, Other)
  Sender: FDA-Public Use
  Company Number: AR-ROCHE-1305549

PATIENT
  Sex: Male

DRUGS (1)
  1. RANIBIZUMAB [Suspect]
     Indication: VISUAL ACUITY REDUCED
     Route: 050
     Dates: start: 2012

REACTIONS (9)
  - Infection [Unknown]
  - Tooth fracture [Unknown]
  - Eye infection [Recovered/Resolved]
  - Myocardial infarction [Unknown]
  - Prostatic disorder [Unknown]
  - Amnesia [Unknown]
  - Visual acuity reduced [Unknown]
  - Overdose [Unknown]
  - Ocular hyperaemia [Unknown]
